FAERS Safety Report 9440163 (Version 2)
Quarter: 2013Q3

REPORT INFORMATION
  Report Type: Report from Study
  Country: CO (occurrence: CO)
  Receive Date: 20130805
  Receipt Date: 20130909
  Transmission Date: 20140515
  Serious: Yes (Other)
  Sender: FDA-Public Use
  Company Number: PHHY2013CO082652

PATIENT
  Age: 44 Year
  Sex: Female
  Weight: 54 kg

DRUGS (5)
  1. ACLASTA [Suspect]
     Indication: OSTEOPENIA
     Dosage: 5 MG/100ML, UNK
     Route: 042
     Dates: start: 20130727
  2. ANGELIQ [Concomitant]
  3. CALCIBON D [Concomitant]
  4. VITAMIN C + E [Concomitant]
     Dosage: UNK
  5. FOLATE [Concomitant]
     Dosage: UNK

REACTIONS (3)
  - Painful respiration [Recovered/Resolved]
  - Gastrointestinal inflammation [Recovered/Resolved]
  - Constipation [Recovered/Resolved]
